FAERS Safety Report 7436636-3 (Version None)
Quarter: 2011Q2

REPORT INFORMATION
  Report Type: 
  Country: None (occurrence: None)
  Receive Date: 20110426
  Receipt Date: 20110414
  Transmission Date: 20111010
  Serious: Yes (Hospitalization, Other)
  Sender: FDA-Public Use
  Company Number: US-RANBAXY-2011US-43765

PATIENT

DRUGS (6)
  1. LORAZEPAM [Suspect]
     Dosage: 1 MG 3 TAB/DAY
     Route: 048
  2. LORAZEPAM [Suspect]
     Dosage: 1 MG, 3 TAB/DAY
     Route: 048
  3. DILANTIN [Concomitant]
     Indication: PRODUCT USED FOR UNKNOWN INDICATION
     Dosage: UNK,UNK
     Route: 065
  4. NEURONTIN [Concomitant]
     Indication: PRODUCT USED FOR UNKNOWN INDICATION
     Dosage: UNK,UNK
     Route: 065
  5. LORAZEPAM [Suspect]
     Dosage: 1 MG, 5 TAB/DAY
     Route: 048
     Dates: start: 20110101
  6. LORAZEPAM [Suspect]
     Indication: ANXIETY
     Dosage: 1 MG, 2TAB/DAY
     Route: 048
     Dates: start: 20100101

REACTIONS (7)
  - SKIN DISORDER [None]
  - DRUG INEFFECTIVE [None]
  - VISUAL ACUITY REDUCED [None]
  - VISION BLURRED [None]
  - HYPERACUSIS [None]
  - GAIT DISTURBANCE [None]
  - PHOTOSENSITIVITY REACTION [None]
